FAERS Safety Report 6712984-7 (Version None)
Quarter: 2010Q2

REPORT INFORMATION
  Report Type: 
  Country: None (occurrence: None)
  Receive Date: 20100506
  Receipt Date: 20100503
  Transmission Date: 20101027
  Serious: Yes (Hospitalization)
  Sender: FDA-Public Use
  Company Number: FR-BRISTOL-MYERS SQUIBB COMPANY-15090004

PATIENT
  Age: 67 Year
  Sex: Male

DRUGS (5)
  1. KENACORT [Suspect]
     Dosage: 1DF=80MG/2ML
     Route: 014
     Dates: start: 20091204
  2. PERFALGAN [Suspect]
  3. MORPHINE SULFATE [Suspect]
  4. ULTRAVIST 150 [Suspect]
     Dosage: ULTRAVIST 370
     Route: 014
     Dates: start: 20091202
  5. PLAVIX [Suspect]
     Dosage: 1TAB ORALLY.
     Route: 048
     Dates: start: 20081101

REACTIONS (2)
  - DRUG INEFFECTIVE [None]
  - HAEMARTHROSIS [None]
